FAERS Safety Report 17814189 (Version 1)
Quarter: 2020Q2

REPORT INFORMATION
  Report Type: Spontaneous
  Country: CA (occurrence: CA)
  Receive Date: 20200522
  Receipt Date: 20200522
  Transmission Date: 20200714
  Serious: Yes (Other)
  Sender: FDA-Public Use
  Company Number: CA-009507513-2005CAN006900

PATIENT
  Sex: Female

DRUGS (1)
  1. REMERON RD [Suspect]
     Active Substance: MIRTAZAPINE
     Dosage: UNK
     Route: 048

REACTIONS (4)
  - Dysphagia [Unknown]
  - Inability to afford medication [Unknown]
  - Adverse event [Unknown]
  - Foreign body in throat [Unknown]
